FAERS Safety Report 22897609 (Version 3)
Quarter: 2023Q4

REPORT INFORMATION
  Report Type: Spontaneous
  Country: GB (occurrence: GB)
  Receive Date: 20230902
  Receipt Date: 20231110
  Transmission Date: 20240110
  Serious: Yes (Death, Other)
  Sender: FDA-Public Use
  Company Number: GB-MHRA-MED-202308231447376810-MJRNW

PATIENT
  Sex: Male

DRUGS (8)
  1. AMISULPRIDE [Suspect]
     Active Substance: AMISULPRIDE
     Indication: Adverse drug reaction
     Dosage: 1200 MILLIGRAM DAILY; 300MG QDS
     Route: 065
     Dates: start: 20220701
  2. AMISULPRIDE [Suspect]
     Active Substance: AMISULPRIDE
     Indication: Schizophrenia
     Dosage: 300 MILLIGRAM DAILY; 300 MG, QD
     Route: 065
  3. CLOZAPINE [Suspect]
     Active Substance: CLOZAPINE
     Indication: Adverse drug reaction
     Dosage: 325 MILLIGRAM DAILY; 125MG MANE AND 200MG NOCTE, UNIT DOSE: 325MG, FREQUENCY TIME : 1 DAYS
     Route: 065
  4. CLOZAPINE [Suspect]
     Active Substance: CLOZAPINE
     Indication: Schizophrenia
     Dosage: 325 MILLIGRAM DAILY; 125 MG IN THE MORNING AND 200 MG AT NIGHT
     Route: 065
  5. FLUOXETINE [Interacting]
     Active Substance: FLUOXETINE HYDROCHLORIDE
     Indication: Anxiety
     Dosage: 60 MILLIGRAM DAILY; 60MG ONCE DAILY
     Route: 065
  6. FLUOXETINE [Interacting]
     Active Substance: FLUOXETINE HYDROCHLORIDE
     Dosage: 60 MILLIGRAM DAILY; 0 MG, QD
     Dates: start: 202102
  7. LORAZEPAM [Concomitant]
     Active Substance: LORAZEPAM
     Indication: Anxiety
     Dosage: 2 MILLIGRAM DAILY; 1MG BD PRN MAX 2MG IN 24HRS
  8. PREGABALIN [Concomitant]
     Active Substance: PREGABALIN
     Indication: Anxiety
     Dosage: 600 MG

REACTIONS (5)
  - Toxicity to various agents [Fatal]
  - Death [Fatal]
  - Medication error [Fatal]
  - Unresponsive to stimuli [Fatal]
  - Drug interaction [Fatal]

NARRATIVE: CASE EVENT DATE: 20220729
